FAERS Safety Report 4648637-9 (Version None)
Quarter: 2005Q2

REPORT INFORMATION
  Report Type: 
  Country: None (occurrence: None)
  Receive Date: 20050429
  Receipt Date: 20050422
  Transmission Date: 20051028
  Serious: Yes (Hospitalization)
  Sender: FDA-Public Use
  Company Number: PHRM2005FR01360

PATIENT
  Age: 12 Year
  Sex: Male

DRUGS (2)
  1. SANDOSTATIN [Suspect]
     Indication: PANCREATITIS
     Route: 042
     Dates: start: 20050320, end: 20050324
  2. PERFALGAN [Concomitant]
     Indication: ABDOMINAL PAIN
     Dosage: 1 DF, QID
     Route: 042
     Dates: start: 20050319, end: 20050319

REACTIONS (5)
  - BLOOD AMYLASE INCREASED [None]
  - HAEMOGLOBIN DECREASED [None]
  - LIPASE INCREASED [None]
  - THROMBOCYTOPENIA [None]
  - THROMBOTIC MICROANGIOPATHY [None]
